FAERS Safety Report 9969574 (Version 2)
Quarter: 2014Q1

REPORT INFORMATION
  Report Type: Report from Study
  Country: IT (occurrence: IT)
  Receive Date: 20140306
  Receipt Date: 20140306
  Transmission Date: 20141002
  Serious: Yes (Hospitalization)
  Sender: FDA-Public Use
  Company Number: IT-ROCHE-760981

PATIENT
  Age: 56 Year
  Sex: Male
  Weight: 84 kg

DRUGS (3)
  1. BEVACIZUMAB [Suspect]
     Indication: COLORECTAL CANCER
     Dosage: FORM: VIALS.
     Route: 042
     Dates: start: 20100222, end: 20100420
  2. IRINOTECAN [Suspect]
     Indication: COLORECTAL CANCER
     Dosage: FORM: VIALS.
     Route: 042
     Dates: start: 20100222, end: 20100519
  3. 5-FLUOROURACIL [Suspect]
     Indication: COLORECTAL CANCER
     Dosage: DOSE: 800 (BOLUS), 4825 (IV). FORM: VIALS.
     Route: 042
     Dates: start: 20100222, end: 20100519

REACTIONS (2)
  - Pulmonary embolism [Recovered/Resolved]
  - Atrial fibrillation [Recovered/Resolved]
